FAERS Safety Report 13737584 (Version 1)
Quarter: 2017Q3

REPORT INFORMATION
  Report Type: Spontaneous
  Country: US (occurrence: US)
  Receive Date: 20170710
  Receipt Date: 20170710
  Transmission Date: 20171127
  Serious: Yes (Other)
  Sender: FDA-Public Use
  Company Number: US-SAOL THERAPEUTICS-2016SAO01086

PATIENT
  Age: 43 Year
  Sex: Female

DRUGS (5)
  1. BACLOFEN. [Suspect]
     Active Substance: BACLOFEN
     Dosage: 653.3 ?G, \DAY
     Route: 037
     Dates: end: 20161110
  2. BACLOFEN. [Suspect]
     Active Substance: BACLOFEN
     Dosage: 376 ?G, \DAY
     Dates: start: 20161110, end: 20161113
  3. BACLOFEN. [Suspect]
     Active Substance: BACLOFEN
     Dosage: 235 ?G, \DAY
     Dates: start: 20161113, end: 20161114
  4. BACLOFEN. [Suspect]
     Active Substance: BACLOFEN
     Dosage: 20 MG, ONCE
     Route: 048
  5. BACLOFEN. [Suspect]
     Active Substance: BACLOFEN
     Dosage: 376 ?G, \DAY
     Dates: start: 20161114

REACTIONS (5)
  - Incorrect route of drug administration [Unknown]
  - Depressed level of consciousness [Recovered/Resolved]
  - Therapeutic response decreased [Unknown]
  - Muscle spasticity [Unknown]
  - Device damage [Recovered/Resolved]

NARRATIVE: CASE EVENT DATE: 2016
